FAERS Safety Report 16507048 (Version 1)
Quarter: 2019Q3

REPORT INFORMATION
  Report Type: Spontaneous
  Country: US (occurrence: US)
  Receive Date: 20190521
  Receipt Date: 20190521
  Transmission Date: 20191004
  Serious: No
  Sender: FDA-Public Use
  Company Number: None

PATIENT
  Age: 68 Year
  Sex: Male
  Weight: 81.65 kg

DRUGS (1)
  1. TREMFYA [Suspect]
     Active Substance: GUSELKUMAB
     Indication: PSORIASIS
     Dosage: ?          OTHER FREQUENCY:WK 0/WK 4;?
     Route: 058
     Dates: start: 201905

REACTIONS (8)
  - Skin disorder [None]
  - Diarrhoea [None]
  - Blister [None]
  - Dizziness [None]
  - Pruritus [None]
  - Psoriasis [None]
  - Abscess [None]
  - Abdominal pain upper [None]
